FAERS Safety Report 9677454 (Version 1)
Quarter: 2013Q4

REPORT INFORMATION
  Report Type: Spontaneous
  Country: US (occurrence: None)
  Receive Date: 20131107
  Receipt Date: 20131107
  Transmission Date: 20140711
  Serious: No
  Sender: FDA-Public Use
  Company Number: None

PATIENT
  Age: 48 Year
  Sex: 0

DRUGS (1)
  1. VICTOZA [Suspect]
     Dosage: 1.8, ONCE DAILY, GIVEN INTO/UNDER THE SKIN

REACTIONS (1)
  - Alopecia [None]
